FAERS Safety Report 13613588 (Version 1)
Quarter: 2017Q2

REPORT INFORMATION
  Report Type: Spontaneous
  Country: US (occurrence: US)
  Receive Date: 20170605
  Receipt Date: 20170605
  Transmission Date: 20170830
  Serious: No
  Sender: FDA-Public Use
  Company Number: US-ASTRAZENECA-2017SE57569

PATIENT
  Age: 49 Year
  Sex: Female

DRUGS (12)
  1. INVOKANA [Concomitant]
     Active Substance: CANAGLIFLOZIN
  2. NEURONTIN [Suspect]
     Active Substance: GABAPENTIN
     Dosage: NON-AZ DRUG
  3. MELATONIN [Concomitant]
     Active Substance: MELATONIN
  4. LISINOPRIL. [Suspect]
     Active Substance: LISINOPRIL
     Route: 048
  5. VITAMIN D [Concomitant]
     Active Substance: CHOLECALCIFEROL
  6. LIPITOR [Suspect]
     Active Substance: ATORVASTATIN CALCIUM
     Dosage: NON-AZ DRUG
  7. CRESTOR [Suspect]
     Active Substance: ROSUVASTATIN CALCIUM
     Route: 048
  8. LOPID [Suspect]
     Active Substance: GEMFIBROZIL
     Dosage: NON-AZ DRUG
  9. OSTEOBI-FLEX PLUS [Concomitant]
  10. JANUMET [Concomitant]
     Active Substance: METFORMIN HYDROCHLORIDE\SITAGLIPTIN PHOSPHATE
  11. LYRICA [Concomitant]
     Active Substance: PREGABALIN
  12. AMOXICILLIN. [Concomitant]
     Active Substance: AMOXICILLIN

REACTIONS (3)
  - Joint swelling [Unknown]
  - Myalgia [Unknown]
  - Drug hypersensitivity [Unknown]
